FAERS Safety Report 5845502-6 (Version None)
Quarter: 2008Q3

REPORT INFORMATION
  Report Type: 
  Country: None (occurrence: None)
  Receive Date: 20080814
  Receipt Date: 20080813
  Transmission Date: 20090109
  Serious: Yes (Hospitalization)
  Sender: FDA-Public Use
  Company Number: FR-ASTRAZENECA-2008CG01190

PATIENT
  Age: 70 Year
  Sex: Female

DRUGS (2)
  1. HYTACAND [Suspect]
     Route: 048
     Dates: start: 20050101, end: 20080801
  2. LERCAN [Suspect]
     Route: 048
     Dates: start: 20050101, end: 20080801

REACTIONS (1)
  - PEMPHIGOID [None]
